FAERS Safety Report 20868901 (Version 1)
Quarter: 2022Q2

REPORT INFORMATION
  Report Type: Spontaneous
  Country: US (occurrence: None)
  Receive Date: 20220524
  Receipt Date: 20220524
  Transmission Date: 20220721
  Serious: Yes (Other)
  Sender: FDA-Public Use
  Company Number: None

PATIENT
  Age: 69 Year
  Sex: Female
  Weight: 64.35 kg

DRUGS (26)
  1. FLUOXETINE HYDROCHLORIDE [Suspect]
     Active Substance: FLUOXETINE HYDROCHLORIDE
     Indication: Depression
     Dosage: OTHER FREQUENCY : 2 IN A.M., 1 P.M.;?
     Route: 048
  2. MIRTAZAPINE [Suspect]
     Active Substance: MIRTAZAPINE
     Indication: Depression
     Dosage: FREQUENCY : AT BEDTIME;?
     Route: 048
  3. FLUTICASONE [Concomitant]
     Active Substance: FLUTICASONE
  4. GABAPENTIN [Concomitant]
     Active Substance: GABAPENTIN
  5. METHADONE [Concomitant]
     Active Substance: METHADONE HYDROCHLORIDE
  6. PRIMIDONE [Concomitant]
     Active Substance: PRIMIDONE
  7. KEPPRA [Concomitant]
     Active Substance: LEVETIRACETAM
  8. ESTRADIOL TRANSDERMAL SYSTEM [Concomitant]
     Active Substance: ESTRADIOL
  9. ALBUTEROL [Concomitant]
     Active Substance: ALBUTEROL
  10. LEVOTHYROXINE [Concomitant]
     Active Substance: LEVOTHYROXINE
  11. OMEPRAZOLE [Concomitant]
     Active Substance: OMEPRAZOLE
  12. FLUTICASONE [Concomitant]
     Active Substance: FLUTICASONE
  13. FLEXERIL [Concomitant]
     Active Substance: CYCLOBENZAPRINE HYDROCHLORIDE
  14. CLONAZEPAM [Concomitant]
     Active Substance: CLONAZEPAM
  15. FLUOXETINE [Concomitant]
     Active Substance: FLUOXETINE HYDROCHLORIDE
  16. MIRTAZAPINE [Concomitant]
     Active Substance: MIRTAZAPINE
  17. VYVANSE [Concomitant]
     Active Substance: LISDEXAMFETAMINE DIMESYLATE
  18. ABILIFY [Concomitant]
     Active Substance: ARIPIPRAZOLE
  19. WELLBUTRIN XL [Concomitant]
     Active Substance: BUPROPION HYDROCHLORIDE
  20. ACETAMINOPHEN [Concomitant]
     Active Substance: ACETAMINOPHEN
  21. VITAMINS [Concomitant]
     Active Substance: VITAMINS
  22. VITAMIN D [Concomitant]
     Active Substance: VITAMIN D NOS
  23. KRILL OIL [Concomitant]
     Active Substance: DIETARY SUPPLEMENT\KRILL OIL
  24. MAGNESIUM [Concomitant]
     Active Substance: MAGNESIUM
  25. VITAMIN C [Concomitant]
     Active Substance: ASCORBIC ACID
  26. ASPIRIN [Concomitant]
     Active Substance: ASPIRIN

REACTIONS (3)
  - Depression [None]
  - Condition aggravated [None]
  - Product substitution issue [None]

NARRATIVE: CASE EVENT DATE: 20220523
